FAERS Safety Report 20939427 (Version 1)
Quarter: 2022Q2

REPORT INFORMATION
  Report Type: Spontaneous
  Country: AU (occurrence: AU)
  Receive Date: 20220609
  Receipt Date: 20220609
  Transmission Date: 20220720
  Serious: Yes (Other)
  Sender: FDA-Public Use
  Company Number: AU-BAXTER-2022BAX011754

PATIENT
  Age: 60 Year
  Sex: Female

DRUGS (7)
  1. DOXORUBICIN [Suspect]
     Active Substance: DOXORUBICIN
     Indication: Waldenstrom^s macroglobulinaemia
     Dosage: UNK, RCHOP REGIMEN, 6 TIMES
     Route: 065
     Dates: start: 201206, end: 201210
  2. CYCLOPHOSPHAMIDE [Suspect]
     Active Substance: CYCLOPHOSPHAMIDE
     Indication: Waldenstrom^s macroglobulinaemia
     Dosage: UNK, RCHOP REGIMEN, 6 TIMES
     Route: 065
     Dates: start: 201206, end: 201210
  3. RITUXIMAB [Suspect]
     Active Substance: RITUXIMAB
     Indication: Waldenstrom^s macroglobulinaemia
     Dosage: UNK, RCHOP REGIMEN, 6 TIMES
     Route: 065
     Dates: start: 201206, end: 201210
  4. RITUXIMAB [Suspect]
     Active Substance: RITUXIMAB
     Dosage: UNK, BR REGIMEN, 6 TIMES
     Route: 065
     Dates: start: 202102, end: 202107
  5. VINCRISTINE [Suspect]
     Active Substance: VINCRISTINE
     Indication: Waldenstrom^s macroglobulinaemia
     Dosage: UNK, RCHOP REGIMEN, 6 TIMES
     Route: 065
     Dates: start: 201206, end: 201210
  6. PREDNISONE [Suspect]
     Active Substance: PREDNISONE
     Indication: Waldenstrom^s macroglobulinaemia
     Dosage: UNK, RCHOP REGIMEN, 6 TIMES
     Route: 065
     Dates: start: 201206, end: 201210
  7. BENDAMUSTINE [Suspect]
     Active Substance: BENDAMUSTINE
     Indication: Waldenstrom^s macroglobulinaemia
     Dosage: UNK, BR REGIMEN, 6 TIMES
     Route: 065
     Dates: start: 202102, end: 202107

REACTIONS (3)
  - Disease progression [Unknown]
  - Full blood count decreased [Unknown]
  - Lethargy [Unknown]

NARRATIVE: CASE EVENT DATE: 20220301
